FAERS Safety Report 6904074-5 (Version None)
Quarter: 2010Q3

REPORT INFORMATION
  Report Type: 
  Country: None (occurrence: None)
  Receive Date: 20100804
  Receipt Date: 20090305
  Transmission Date: 20110219
  Serious: No
  Sender: FDA-Public Use
  Company Number: US-PFIZER INC-2008159236

PATIENT
  Sex: Male
  Weight: 81.6 kg

DRUGS (5)
  1. LYRICA [Suspect]
     Indication: FIBROMYALGIA
     Dosage: 225 MG, 1X/DAY
     Route: 048
     Dates: start: 20081101
  2. LYRICA [Interacting]
     Indication: RHEUMATOID ARTHRITIS
  3. LYRICA [Interacting]
     Indication: NEUROPATHY PERIPHERAL
  4. ESKALITH CR [Interacting]
     Indication: BIPOLAR DISORDER
     Dosage: 900 MG, 2X/DAY
     Route: 048
     Dates: start: 19990101
  5. DESIPRAMINE HCL [Concomitant]
     Dosage: UNK

REACTIONS (2)
  - ANTIPSYCHOTIC DRUG LEVEL INCREASED [None]
  - DRUG INTERACTION [None]
